FAERS Safety Report 9183085 (Version 1)
Quarter: 2013Q1

REPORT INFORMATION
  Report Type: Spontaneous
  Country: US (occurrence: US)
  Receive Date: 20130322
  Receipt Date: 20130322
  Transmission Date: 20140127
  Serious: Yes (Other)
  Sender: FDA-Public Use
  Company Number: US-BRISTOL-MYERS SQUIBB COMPANY-16889917

PATIENT
  Age: 75 Year
  Sex: Male

DRUGS (2)
  1. ERBITUX [Suspect]
     Indication: THROAT CANCER
     Dosage: NO OF TREATMENTS 3
  2. ERBITUX [Suspect]
     Indication: HEAD AND NECK CANCER
     Dosage: NO OF TREATMENTS 3

REACTIONS (2)
  - General physical condition abnormal [Unknown]
  - Speech disorder [Unknown]
